FAERS Safety Report 24570188 (Version 1)
Quarter: 2024Q4

REPORT INFORMATION
  Report Type: Spontaneous
  Country: US (occurrence: None)
  Receive Date: 20241031
  Receipt Date: 20241031
  Transmission Date: 20250115
  Serious: Yes (Hospitalization)
  Sender: Public
  Company Number: None

PATIENT
  Age: 74 Year
  Sex: Male
  Weight: 97.5 kg

DRUGS (2)
  1. PEMBROLIZUMAB [Suspect]
     Active Substance: PEMBROLIZUMAB
     Indication: Prostate cancer
     Dosage: OTHER FREQUENCY : ONCE EVERY 21 DAYS;?
     Route: 042
     Dates: start: 20241009
  2. OLAPARIB [Suspect]
     Active Substance: OLAPARIB
     Indication: Prostate cancer
     Dosage: FREQUENCY : TWICE A DAY;?
     Route: 048
     Dates: start: 20240807

REACTIONS (12)
  - Dyspnoea [None]
  - Hypoxia [None]
  - Dyspnoea exertional [None]
  - Chest discomfort [None]
  - Orthopnoea [None]
  - Peripheral swelling [None]
  - Lung opacity [None]
  - Interstitial lung disease [None]
  - Arteriosclerosis coronary artery [None]
  - Pulmonary septal thickening [None]
  - Troponin increased [None]
  - N-terminal prohormone brain natriuretic peptide increased [None]

NARRATIVE: CASE EVENT DATE: 20241024
